FAERS Safety Report 6391110-0 (Version None)
Quarter: 2009Q4

REPORT INFORMATION
  Report Type: 
  Country: None (occurrence: None)
  Receive Date: 20091006
  Receipt Date: 20091006
  Transmission Date: 20100525
  Serious: Yes (Other)
  Sender: FDA-Public Use
  Company Number: None

PATIENT
  Age: 64 Year
  Sex: Male
  Weight: 76.2043 kg

DRUGS (1)
  1. NUCYNTA 50MG TABLETS JANSSEN ORTHO, LLC FOR PRICARA [Suspect]
     Indication: PAIN
     Dosage: 1-2 TABLETS EVERY 4 TO 6 HOURS PO
     Route: 048
     Dates: start: 20091001, end: 20091002

REACTIONS (7)
  - ANXIETY [None]
  - CONFUSIONAL STATE [None]
  - DYSPNOEA [None]
  - IMPAIRED DRIVING ABILITY [None]
  - INSOMNIA [None]
  - NAUSEA [None]
  - TRANCE [None]
